FAERS Safety Report 7210998-4 (Version None)
Quarter: 2011Q1

REPORT INFORMATION
  Report Type: 
  Country: None (occurrence: None)
  Receive Date: 20110105
  Receipt Date: 20101228
  Transmission Date: 20110831
  Serious: Yes (Hospitalization, Congenital Anomaly)
  Sender: FDA-Public Use
  Company Number: B0691127A

PATIENT
  Sex: Male
  Weight: 3.3 kg

DRUGS (5)
  1. LEXOMIL [Concomitant]
     Dosage: 12MG PER DAY
     Dates: end: 20090201
  2. PROZAC [Concomitant]
  3. LAMICTAL [Suspect]
     Indication: PRODUCT USED FOR UNKNOWN INDICATION
     Dosage: 150MG PER DAY
  4. IMOVANE [Suspect]
     Dosage: 15MG PER DAY
  5. METHADONE [Suspect]
     Dates: end: 20090421

REACTIONS (8)
  - IRRITABILITY [None]
  - TALIPES [None]
  - FEEDING DISORDER NEONATAL [None]
  - WITHDRAWAL SYNDROME [None]
  - DRUG EXPOSURE DURING PREGNANCY [None]
  - MATERNAL DRUGS AFFECTING FOETUS [None]
  - AGITATION NEONATAL [None]
  - DRUG WITHDRAWAL SYNDROME NEONATAL [None]
